FAERS Safety Report 5093959-3 (Version None)
Quarter: 2006Q3

REPORT INFORMATION
  Report Type: 
  Country: None (occurrence: None)
  Receive Date: 20060728
  Receipt Date: 20060406
  Transmission Date: 20061208
  Serious: No
  Sender: FDA-Public Use
  Company Number: 252315

PATIENT
  Age: 37 Year
  Sex: Female
  Weight: 39.9 kg

DRUGS (3)
  1. LEVEMIR [Suspect]
     Indication: INSULIN-REQUIRING TYPE II DIABETES MELLITUS
     Dosage: 6IU, QD, SUBCUTANEOUS
     Route: 058
     Dates: start: 20060401
  2. NOVOLOG [Suspect]
     Indication: INSULIN-REQUIRING TYPE II DIABETES MELLITUS
     Dosage: 12 IU, QD, SUBCUTANEOUS
     Route: 058
     Dates: start: 20060401
  3. ALBUTEROL [Concomitant]

REACTIONS (3)
  - CHEST DISCOMFORT [None]
  - HEAD DISCOMFORT [None]
  - NAUSEA [None]
